FAERS Safety Report 24657608 (Version 3)
Quarter: 2025Q3

REPORT INFORMATION
  Report Type: Report from Study
  Country: US (occurrence: US)
  Receive Date: 20241125
  Receipt Date: 20250803
  Transmission Date: 20251021
  Serious: Yes (Other)
  Sender: ALEXION PHARMACEUTICALS
  Company Number: US-AstraZeneca-CH-00748279A

PATIENT
  Sex: Female
  Weight: 120.65 kg

DRUGS (8)
  1. ACALABRUTINIB [Suspect]
     Active Substance: ACALABRUTINIB
     Indication: Chronic lymphocytic leukaemia
     Dosage: 100 MILLIGRAM, BID
     Dates: start: 20240813
  2. GAZYVA [Concomitant]
     Active Substance: OBINUTUZUMAB
     Route: 065
  3. HYDROCORTISONE [Concomitant]
     Active Substance: HYDROCORTISONE
     Route: 065
  4. IBUPROFEN [Concomitant]
     Active Substance: IBUPROFEN
     Route: 065
  5. PLAQUENIL [Concomitant]
     Active Substance: HYDROXYCHLOROQUINE SULFATE
     Route: 065
  6. PREDNISONE [Concomitant]
     Active Substance: PREDNISONE
     Route: 065
  7. VITAMIN D [Concomitant]
     Active Substance: VITAMIN D NOS
     Route: 065
  8. ACIDOPHILUS [Concomitant]
     Active Substance: LACTOBACILLUS ACIDOPHILUS

REACTIONS (5)
  - Peripheral swelling [Recovering/Resolving]
  - Full blood count abnormal [Recovering/Resolving]
  - Renal failure [Unknown]
  - Nasopharyngitis [Unknown]
  - Memory impairment [Unknown]
